FAERS Safety Report 9197938 (Version 2)
Quarter: 2013Q2

REPORT INFORMATION
  Report Type: Report from Study
  Country: DE (occurrence: DE)
  Receive Date: 20130328
  Receipt Date: 20130502
  Transmission Date: 20140414
  Serious: Yes (Hospitalization)
  Sender: FDA-Public Use
  Company Number: DE-UCBSA-081496

PATIENT
  Age: 41 Year
  Sex: Male

DRUGS (5)
  1. VIMPAT [Suspect]
     Indication: EPILEPSY
     Dosage: STARTING DOSE 50 MG/DAY
     Dates: start: 20100108, end: 2010
  2. VIMPAT [Suspect]
     Indication: EPILEPSY
     Dosage: 400 MG/DAY
     Dates: start: 2010, end: 20100907
  3. LAMOTRIGINE [Concomitant]
     Indication: EPILEPSY
     Dosage: DOSE 750 MG/DAY
  4. OXCARABAZEPINE [Concomitant]
     Indication: EPILEPSY
     Dosage: DOSE 1050 MG/DAY
     Dates: end: 2010
  5. VALPROATE [Concomitant]
     Indication: EPILEPSY
     Dosage: 300 MG/DAY
     Dates: start: 2010

REACTIONS (2)
  - Grand mal convulsion [Unknown]
  - Drug ineffective [Recovered/Resolved]
